FAERS Safety Report 11458295 (Version 2)
Quarter: 2015Q4

REPORT INFORMATION
  Report Type: Spontaneous
  Country: US (occurrence: US)
  Receive Date: 20150904
  Receipt Date: 20151010
  Transmission Date: 20160304
  Serious: No
  Sender: FDA-Public Use
  Company Number: US-B.I. PHARMACEUTICALS,INC./RIDGEFIELD-2015-BI-46357BP

PATIENT
  Age: 56 Year
  Sex: Female
  Weight: 94 kg

DRUGS (1)
  1. COMBIVENT [Suspect]
     Active Substance: ALBUTEROL SULFATE\IPRATROPIUM BROMIDE
     Indication: DIAPHRAGMATIC DISORDER
     Dosage: STRENGTH: 20MCG/100 MCG; DAILY DOSE: 80MCG/400 MCG
     Route: 055
     Dates: start: 201506, end: 201506

REACTIONS (1)
  - Off label use [Unknown]

NARRATIVE: CASE EVENT DATE: 201506
